FAERS Safety Report 25561031 (Version 3)
Quarter: 2025Q3

REPORT INFORMATION
  Report Type: Report from Study
  Country: US (occurrence: US)
  Receive Date: 20250715
  Receipt Date: 20250905
  Transmission Date: 20251020
  Serious: No
  Sender: ABBVIE
  Company Number: US-ABBVIE-6049747

PATIENT
  Age: 76 Year
  Sex: Female
  Weight: 83 kg

DRUGS (2)
  1. RINVOQ [Suspect]
     Active Substance: UPADACITINIB
     Indication: Rheumatoid arthritis
     Route: 048
     Dates: start: 20230614
  2. RECLAST [Concomitant]
     Active Substance: ZOLEDRONIC ACID
     Indication: Product used for unknown indication
     Dates: start: 20230515

REACTIONS (2)
  - Fall [Unknown]
  - Ulna fracture [Unknown]

NARRATIVE: CASE EVENT DATE: 20241101
